FAERS Safety Report 8845595 (Version 1)
Quarter: 2012Q4

REPORT INFORMATION
  Report Type: 
  Country: CN (occurrence: CN)
  Receive Date: 20121017
  Receipt Date: 20121017
  Transmission Date: 20130627
  Serious: Yes (Other)
  Sender: FDA-Public Use
  Company Number: CN-ABBOTT-12P-035-0994758-00

PATIENT
  Age: 57 Year
  Sex: Male

DRUGS (3)
  1. DEPAKINE [Suspect]
     Indication: EPILEPSY
     Dosage: Extended release
     Route: 048
     Dates: start: 20121001
  2. CLOZAPINE [Concomitant]
     Indication: PRODUCT USED FOR UNKNOWN INDICATION
     Dates: start: 1981
  3. NIFEDIPINE [Concomitant]
     Indication: PRODUCT USED FOR UNKNOWN INDICATION

REACTIONS (3)
  - Eye movement disorder [Unknown]
  - Epilepsy [Unknown]
  - Confusional state [Unknown]
